FAERS Safety Report 5682915-X (Version None)
Quarter: 2008Q1

REPORT INFORMATION
  Report Type: 
  Country: None (occurrence: None)
  Receive Date: 20080327
  Receipt Date: 20080318
  Transmission Date: 20080703
  Serious: Yes (Death, Life-Threatening, Hospitalization, Disabling, Other)
  Sender: FDA-Public Use
  Company Number: JP-JNJFOC-20071101473

PATIENT
  Sex: Male

DRUGS (9)
  1. CRAVIT [Suspect]
     Indication: PNEUMONIA
     Route: 048
     Dates: start: 20071018, end: 20071022
  2. LIORESAL [Concomitant]
     Indication: SPASTIC PARALYSIS
     Route: 048
  3. DANTRIUM [Concomitant]
     Indication: SPASTIC PARALYSIS
     Route: 048
  4. LASIX [Concomitant]
     Route: 065
  5. ALDACTONE [Concomitant]
     Route: 065
  6. AMIODARONE HCL [Concomitant]
     Route: 065
  7. GLUCONSAN K [Concomitant]
     Route: 065
  8. RIVOTRIL [Concomitant]
     Route: 065
  9. CINBERAMIN D [Concomitant]
     Route: 065

REACTIONS (2)
  - LIVER DISORDER [None]
  - PNEUMONIA [None]
